FAERS Safety Report 10200179 (Version 1)
Quarter: 2014Q2

REPORT INFORMATION
  Report Type: Spontaneous
  Country: US (occurrence: US)
  Receive Date: 20140527
  Receipt Date: 20140527
  Transmission Date: 20141212
  Serious: No
  Sender: FDA-Public Use
  Company Number: US-PFIZER INC-2014139524

PATIENT
  Sex: Male

DRUGS (1)
  1. IBUPROFEN [Suspect]
     Indication: PAIN
     Dosage: ONE TABLET OF 800 MG, THREE TIMES DAILY (AS NEEDED)
     Route: 048

REACTIONS (4)
  - Overdose [Unknown]
  - Swelling [Unknown]
  - Back pain [Unknown]
  - Chest pain [Unknown]
